FAERS Safety Report 7506096-2 (Version None)
Quarter: 2011Q2

REPORT INFORMATION
  Report Type: 
  Country: None (occurrence: None)
  Receive Date: 20110526
  Receipt Date: 20110524
  Transmission Date: 20111010
  Serious: Yes (Other)
  Sender: FDA-Public Use
  Company Number: US-AMGEN-USASP2011024680

PATIENT
  Age: 52 Year
  Sex: Female
  Weight: 81.3 kg

DRUGS (6)
  1. ZOFRAN [Concomitant]
     Dosage: 24 MG, UNK
     Route: 042
  2. SOLU-CORTEF [Concomitant]
     Dosage: 100 MG, UNK
     Route: 042
     Dates: start: 20110509
  3. DIPHENHYDRAMINE HCL [Concomitant]
     Dosage: 50 MG, UNK
     Route: 042
     Dates: start: 20110509
  4. FAMOTIDINE [Concomitant]
     Dosage: 20 MG, UNK
     Route: 042
     Dates: start: 20110509
  5. VECTIBIX [Suspect]
     Indication: COLORECTAL CANCER METASTATIC
     Dosage: 200 MG, ONE TIME DOSE
     Route: 042
     Dates: start: 20110509
  6. ZYRTEC [Concomitant]
     Dosage: UNK
     Route: 048
     Dates: start: 20110509

REACTIONS (5)
  - HYPERSENSITIVITY [None]
  - UVEITIS [None]
  - ANGIOEDEMA [None]
  - ERYTHEMA [None]
  - KERATITIS [None]
